FAERS Safety Report 14560118 (Version 3)
Quarter: 2018Q3

REPORT INFORMATION
  Report Type: Spontaneous
  Country: US (occurrence: US)
  Receive Date: 20180222
  Receipt Date: 20180831
  Transmission Date: 20181010
  Serious: No
  Sender: FDA-Public Use
  Company Number: US-BRISTOL-MYERS SQUIBB COMPANY-BMS-2018-017132

PATIENT
  Sex: Female
  Weight: 88.44 kg

DRUGS (1)
  1. ORENCIA [Suspect]
     Active Substance: ABATACEPT
     Indication: RHEUMATOID ARTHRITIS
     Dosage: 125 MG, QWK
     Route: 058
     Dates: start: 201712

REACTIONS (4)
  - Oropharyngeal pain [Unknown]
  - Nervous system disorder [Unknown]
  - Fibromyalgia [Unknown]
  - Malaise [Unknown]
